FAERS Safety Report 12539307 (Version 1)
Quarter: 2016Q3

REPORT INFORMATION
  Report Type: Spontaneous
  Country: US (occurrence: None)
  Receive Date: 20160707
  Receipt Date: 20160707
  Transmission Date: 20161109
  Serious: Yes (Other)
  Sender: FDA-Public Use
  Company Number: None

PATIENT
  Age: 20 Year
  Sex: Female
  Weight: 47.17 kg

DRUGS (9)
  1. PEPCID-GENERIC [Concomitant]
  2. ST JOHNS WORT [Concomitant]
     Active Substance: ST. JOHN^S WORT
  3. AZATHIOPRINE UNKNOWN [Suspect]
     Active Substance: AZATHIOPRINE
     Indication: CROHN^S DISEASE
     Dosage: 2 PILLS 1 X DAY ORAL
     Route: 048
     Dates: start: 20141107, end: 20141129
  4. MULTIVITAMIN [Concomitant]
     Active Substance: VITAMINS
  5. IRON [Concomitant]
     Active Substance: IRON
  6. PATANOL [Concomitant]
     Active Substance: OLOPATADINE HYDROCHLORIDE
  7. VITAMIN D [Concomitant]
     Active Substance: CHOLECALCIFEROL
  8. VIT B [Concomitant]
     Active Substance: VITAMIN B
  9. VITAMIN C [Concomitant]
     Active Substance: ASCORBIC ACID

REACTIONS (10)
  - Nausea [None]
  - Weight decreased [None]
  - Vomiting [None]
  - Rectal haemorrhage [None]
  - Myalgia [None]
  - Diarrhoea [None]
  - Back pain [None]
  - Headache [None]
  - Abdominal pain upper [None]
  - Dehydration [None]

NARRATIVE: CASE EVENT DATE: 20141128
